FAERS Safety Report 7907942-0 (Version None)
Quarter: 2011Q4

REPORT INFORMATION
  Report Type: 
  Country: None (occurrence: None)
  Receive Date: 20111110
  Receipt Date: 20111103
  Transmission Date: 20120403
  Serious: Yes (Hospitalization)
  Sender: FDA-Public Use
  Company Number: US-ASTRAZENECA-2011SE49854

PATIENT
  Age: 40 Year
  Sex: Female

DRUGS (2)
  1. SEROQUEL XR [Suspect]
     Indication: INSOMNIA
     Route: 048
  2. XANAX [Suspect]
     Route: 065

REACTIONS (7)
  - CONVULSION [None]
  - OFF LABEL USE [None]
  - DRUG DOSE OMISSION [None]
  - SLEEP DISORDER [None]
  - STRESS [None]
  - THROAT IRRITATION [None]
  - INSOMNIA [None]
